FAERS Safety Report 18686837 (Version 1)
Quarter: 2020Q4

REPORT INFORMATION
  Report Type: Spontaneous
  Country: US (occurrence: US)
  Receive Date: 20201231
  Receipt Date: 20201231
  Transmission Date: 20210114
  Serious: Yes (Other)
  Sender: FDA-Public Use
  Company Number: US-DECIPHERA PHARMACEUTICALS LLC-2020-US-000775

PATIENT

DRUGS (2)
  1. QINLOCK [Suspect]
     Active Substance: RIPRETINIB
     Indication: PRODUCT USED FOR UNKNOWN INDICATION
     Dosage: 150 MILLIGRAM, QD
     Route: 048
  2. QINLOCK [Suspect]
     Active Substance: RIPRETINIB
     Dosage: 300 MILLIGRAM, QD
     Route: 048

REACTIONS (10)
  - Fatigue [Unknown]
  - Weight decreased [Unknown]
  - Tumour necrosis [Unknown]
  - Drug ineffective [Unknown]
  - Overdose [Unknown]
  - Ageusia [Unknown]
  - Squamous cell carcinoma of skin [Unknown]
  - Neoplasm progression [Unknown]
  - Somnolence [Unknown]
  - Alopecia [Unknown]
